FAERS Safety Report 6991768-9 (Version None)
Quarter: 2010Q3

REPORT INFORMATION
  Report Type: 
  Country: None (occurrence: None)
  Receive Date: 20100917
  Receipt Date: 20100909
  Transmission Date: 20110219
  Serious: Yes (Other)
  Sender: FDA-Public Use
  Company Number: US-PFIZER INC-2010114976

PATIENT
  Sex: Female

DRUGS (2)
  1. CHANTIX [Suspect]
     Indication: SMOKING CESSATION THERAPY
     Dosage: 0.5 MG, 1X/DAY
     Route: 048
     Dates: start: 20080101
  2. CHANTIX [Suspect]
     Dosage: 1 MG, 2X/DAY
     Route: 048
     Dates: start: 20080101, end: 20080101

REACTIONS (7)
  - BLOOD CHOLESTEROL INCREASED [None]
  - DECREASED APPETITE [None]
  - DEPRESSED MOOD [None]
  - LETHARGY [None]
  - SOMNOLENCE [None]
  - SUICIDAL IDEATION [None]
  - WEIGHT DECREASED [None]
